FAERS Safety Report 14967086 (Version 1)
Quarter: 2018Q2

REPORT INFORMATION
  Report Type: Spontaneous
  Country: IN (occurrence: IN)
  Receive Date: 20180604
  Receipt Date: 20180604
  Transmission Date: 20180711
  Serious: Yes (Death)
  Sender: FDA-Public Use
  Company Number: IN-CHEPLA-C20170692_A

PATIENT
  Age: 25 Year
  Sex: Male

DRUGS (7)
  1. HYDROXYUREA. [Suspect]
     Active Substance: HYDROXYUREA
     Dosage: 1 GM/DAY (DAY 5 UNTIL DAY 10)
     Route: 065
  2. DAUNORUBICIN [Suspect]
     Active Substance: DAUNORUBICIN
     Dosage: 60 MG/MM2 (DAY 13 UNTIL DAY 14)
     Route: 065
  3. ATO (ARSENIC TRIOXIDE) [Suspect]
     Active Substance: ARSENIC TRIOXIDE
     Indication: ACUTE PROMYELOCYTIC LEUKAEMIA
     Dosage: 0.15 MG/KG (DAY 7 UNTIL DAY 14)
     Route: 065
  4. PREDNISOLONE. [Suspect]
     Active Substance: PREDNISOLONE
     Dosage: DAY 1 UNTIL DAY 14
     Route: 065
  5. ATRA [Suspect]
     Active Substance: TRETINOIN
     Indication: ACUTE PROMYELOCYTIC LEUKAEMIA
     Dosage: 45 MG/MM2 (DAY 1 UNTIL DAY 14; DAY 21 UNTIL DAY 25)
     Route: 065
  6. HYDROXYUREA. [Suspect]
     Active Substance: HYDROXYUREA
     Dosage: 4 GM/DAY (DAY 11 UNTIL DAY 20)
     Route: 065
  7. DEXAMETHASONE. [Suspect]
     Active Substance: DEXAMETHASONE
     Dosage: DAY 15 UNTIL DAY 25
     Route: 065

REACTIONS (6)
  - Respiratory failure [None]
  - Arrhythmia [None]
  - Hyperleukocytosis [None]
  - Pyrexia [Recovered/Resolved]
  - Weight increased [None]
  - Acute promyelocytic leukaemia differentiation syndrome [Fatal]
